FAERS Safety Report 6279058-3 (Version None)
Quarter: 2009Q3

REPORT INFORMATION
  Report Type: 
  Country: None (occurrence: None)
  Receive Date: 20090723
  Receipt Date: 20090715
  Transmission Date: 20100115
  Serious: No
  Sender: FDA-Public Use
  Company Number: US-JNJFOC-20090705466

PATIENT
  Sex: Female
  Weight: 68.95 kg

DRUGS (3)
  1. DURAGESIC-100 [Suspect]
     Indication: BACK PAIN
     Route: 062
  2. ULTRAM [Concomitant]
     Indication: BREAKTHROUGH PAIN
     Dosage: AS NEEDED
  3. TOPAMAX [Concomitant]
     Indication: NERVE INJURY
     Route: 048

REACTIONS (2)
  - HOT FLUSH [None]
  - INAPPROPRIATE SCHEDULE OF DRUG ADMINISTRATION [None]
